FAERS Safety Report 6052942-1 (Version None)
Quarter: 2009Q1

REPORT INFORMATION
  Report Type: 
  Country: None (occurrence: None)
  Receive Date: 20090127
  Receipt Date: 20090115
  Transmission Date: 20090719
  Serious: Yes (Hospitalization, Other)
  Sender: FDA-Public Use
  Company Number: FR-AVENTIS-200910197FR

PATIENT
  Age: 36 Year
  Sex: Female

DRUGS (6)
  1. NEULEPTIL [Suspect]
     Indication: DRUG USE FOR UNKNOWN INDICATION
     Route: 048
     Dates: start: 20080416, end: 20080423
  2. LOVENOX [Suspect]
     Indication: DRUG USE FOR UNKNOWN INDICATION
     Route: 058
     Dates: start: 20080417, end: 20080424
  3. CLAMOXYL                           /00249601/ [Suspect]
     Indication: DRUG USE FOR UNKNOWN INDICATION
     Route: 048
     Dates: start: 20080421, end: 20080423
  4. RISPERDAL [Concomitant]
     Indication: DRUG USE FOR UNKNOWN INDICATION
     Route: 048
     Dates: start: 20080323, end: 20080423
  5. ZOVIRAX [Concomitant]
     Indication: DRUG USE FOR UNKNOWN INDICATION
     Route: 003
     Dates: start: 20080421
  6. DEPAKOTE [Concomitant]
     Indication: DRUG USE FOR UNKNOWN INDICATION
     Route: 048
     Dates: start: 20080317, end: 20080418

REACTIONS (3)
  - NEUTROPENIA [None]
  - PYREXIA [None]
  - WHITE BLOOD CELL COUNT DECREASED [None]
